FAERS Safety Report 13414678 (Version 1)
Quarter: 2017Q2

REPORT INFORMATION
  Report Type: Spontaneous
  Country: US (occurrence: US)
  Receive Date: 20170406
  Receipt Date: 20170406
  Transmission Date: 20170830
  Serious: Yes (Other)
  Sender: FDA-Public Use
  Company Number: US-JNJFOC-20170331684

PATIENT
  Age: 7 Decade
  Sex: Female

DRUGS (7)
  1. BENADRYL [Suspect]
     Active Substance: DIPHENHYDRAMINE HYDROCHLORIDE
     Indication: SLEEP DISORDER THERAPY
     Dosage: 5 TIMES IN A WEEK AT BEDTIME
     Route: 048
  2. CITRACAL [Concomitant]
     Active Substance: CALCIUM CITRATE
     Indication: NUTRITIONAL SUPPLEMENTATION
     Dosage: UNKNOWN/DAILY FOR YEARS
     Route: 065
  3. MAGNESIUM [Concomitant]
     Active Substance: MAGNESIUM
     Indication: MINERAL SUPPLEMENTATION
     Dosage: UNKNOWN/DAILY FOR YEARS
     Route: 065
  4. METOPROLOL. [Concomitant]
     Active Substance: METOPROLOL
     Indication: VENTRICULAR EXTRASYSTOLES
     Dosage: 1/2 TABLET DAY, 2 MONTHS
     Route: 065
     Dates: start: 201701
  5. VITAMIN D [Concomitant]
     Active Substance: CHOLECALCIFEROL
     Indication: VITAMIN SUPPLEMENTATION
     Dosage: UNKNOWN/DAILY, YEARS
     Route: 065
  6. ACIPHEX [Concomitant]
     Active Substance: RABEPRAZOLE SODIUM
     Indication: GASTROOESOPHAGEAL REFLUX DISEASE
     Dosage: 2 MONTHS
     Route: 065
     Dates: start: 201701
  7. METOPROLOL. [Concomitant]
     Active Substance: METOPROLOL
     Indication: HEART RATE INCREASED
     Dosage: 1/2 TABLET DAY, 2 MONTHS
     Route: 065
     Dates: start: 201701

REACTIONS (4)
  - Drug use disorder [Not Recovered/Not Resolved]
  - Off label use [Not Recovered/Not Resolved]
  - Product use in unapproved indication [Not Recovered/Not Resolved]
  - Therapeutic response unexpected [Unknown]
